FAERS Safety Report 8191359-0 (Version None)
Quarter: 2012Q1

REPORT INFORMATION
  Report Type: 
  Country: None (occurrence: None)
  Receive Date: 20120307
  Receipt Date: 20120224
  Transmission Date: 20120608
  Serious: No
  Sender: FDA-Public Use
  Company Number: US-BAYER-2012-019405

PATIENT
  Sex: Female

DRUGS (2)
  1. CIPRO [Suspect]
     Indication: URINARY TRACT INFECTION
     Dosage: 500 MG, BID
     Dates: start: 20120224
  2. ZANAFLEX [Concomitant]

REACTIONS (1)
  - NO ADVERSE EVENT [None]
